FAERS Safety Report 8181621 (Version 2)
Quarter: 2012Q4

REPORT INFORMATION
  Report Type: 
  Country: DE (occurrence: DE)
  Receive Date: 20111014
  Receipt Date: 20121025
  Transmission Date: 20130627
  Serious: Yes (Hospitalization)
  Sender: FDA-Public Use
  Company Number: DE-GLAXOSMITHKLINE-D0072117A

PATIENT
  Age: 56 Year

DRUGS (5)
  1. REQUIP-MODUTAB [Suspect]
     Indication: PARKINSON^S DISEASE
     Dosage: 12MG per day
     Route: 048
  2. NEUPRO [Suspect]
     Dosage: 16MG per day
     Route: 062
  3. CARBIDOPA [Suspect]
     Route: 065
  4. TASMAR [Suspect]
     Route: 065
  5. ENTACAPONE [Suspect]
     Route: 065

REACTIONS (9)
  - Drug ineffective [Unknown]
  - Condition aggravated [Unknown]
  - Therapeutic response unexpected [Unknown]
  - Asthenia [Unknown]
  - Gout [Unknown]
  - Diplegia [Unknown]
  - Pulmonary fibrosis [Unknown]
  - Dyspnoea [Unknown]
  - Pain in extremity [Recovered/Resolved]
